FAERS Safety Report 7679552-4 (Version None)
Quarter: 2011Q3

REPORT INFORMATION
  Report Type: 
  Country: None (occurrence: None)
  Receive Date: 20110809
  Receipt Date: 20110727
  Transmission Date: 20111222
  Serious: Yes (Other)
  Sender: FDA-Public Use
  Company Number: 1000022654

PATIENT
  Age: 61 Year
  Sex: Female

DRUGS (7)
  1. ONBREZ (INDACATEROL MALEATE) (INDACATEROL MALEATE) [Concomitant]
  2. SPIRIVA (TIOTROPIUM BROMIDE) (18 MICROGRAM) (TIOTROPIUM BROMIDE) [Concomitant]
  3. NATECAL (CALCIUM CARBONATE) (CALCIUM CARBONATE) [Concomitant]
  4. ROFLUMILAST (ROFLUMILAST) (ROFLUMILAST) [Suspect]
     Indication: CHRONIC OBSTRUCTIVE PULMONARY DISEASE
     Dosage: 500 MCG (500 MCG,1 IN 1 D)
     Dates: start: 20110408
  5. PRAVASTATIN [Concomitant]
  6. PROLASTIN (ALPHA-1-ANTITRYPSIN) (1000 MILLIGRAM) (ALPHA-1-ANTITRYPSIN) [Concomitant]
  7. RISEDRONATE SODIUM (RISEDRONATE SODIUM) (RISEDRONATE SODIUM) [Concomitant]

REACTIONS (7)
  - DEPRESSION [None]
  - NAUSEA [None]
  - INSOMNIA [None]
  - FATIGUE [None]
  - MUSCULAR WEAKNESS [None]
  - DIARRHOEA [None]
  - ANXIETY [None]
